FAERS Safety Report 5532896-4 (Version None)
Quarter: 2007Q4

REPORT INFORMATION
  Report Type: 
  Country: None (occurrence: None)
  Receive Date: 20071119
  Receipt Date: 20071002
  Transmission Date: 20080405
  Serious: No
  Sender: FDA-Public Use
  Company Number: TPA2007A02029

PATIENT
  Age: 51 Year
  Sex: Female
  Weight: 72.5755 kg

DRUGS (4)
  1. ROZEREM [Suspect]
     Indication: INSOMNIA
     Dosage: 8 MG, ONCE, PER ORAL
     Route: 048
     Dates: start: 20070901, end: 20070901
  2. DETROL LA [Concomitant]
  3. EFFEXOR [Concomitant]
  4. LORAZEPAM [Concomitant]

REACTIONS (4)
  - EYE PAIN [None]
  - MIDDLE INSOMNIA [None]
  - POOR QUALITY SLEEP [None]
  - SOMNOLENCE [None]
